FAERS Safety Report 10156186 (Version 3)
Quarter: 2014Q2

REPORT INFORMATION
  Report Type: Report from Study
  Country: CA (occurrence: CA)
  Receive Date: 20140506
  Receipt Date: 20140513
  Transmission Date: 20141212
  Serious: Yes (Hospitalization)
  Sender: FDA-Public Use
  Company Number: CA-ABBVIE-14P-028-1213327-00

PATIENT
  Age: 44 Year
  Sex: Female

DRUGS (1)
  1. HUMIRA [Suspect]
     Indication: CROHN^S DISEASE
     Route: 058
     Dates: start: 20140201

REACTIONS (4)
  - Abdominal discomfort [Unknown]
  - Fatigue [Not Recovered/Not Resolved]
  - Injection site swelling [Not Recovered/Not Resolved]
  - Malaise [Unknown]
